FAERS Safety Report 8811181 (Version 2)
Quarter: 2012Q4

REPORT INFORMATION
  Report Type: 
  Country: US (occurrence: US)
  Receive Date: 20120927
  Receipt Date: 20121022
  Transmission Date: 20130627
  Serious: Yes (Other)
  Sender: FDA-Public Use
  Company Number: PHEH2012US018740

PATIENT
  Age: 86 Year
  Sex: Female

DRUGS (2)
  1. EXELON PATCH [Suspect]
     Dosage: 0.5 DF (4.6mg), UNK
     Route: 062
  2. EXELON PATCH [Suspect]
     Dosage: 4.6 mg, UNK
     Route: 062

REACTIONS (2)
  - Dementia Alzheimer^s type [Not Recovered/Not Resolved]
  - Wrong technique in drug usage process [Unknown]
